FAERS Safety Report 25990310 (Version 1)
Quarter: 2025Q4

REPORT INFORMATION
  Report Type: Spontaneous
  Country: EU (occurrence: EU)
  Receive Date: 20251103
  Receipt Date: 20251103
  Transmission Date: 20260118
  Serious: Yes (Life-Threatening, Hospitalization, Other)
  Sender: PFIZER
  Company Number: None

PATIENT
  Age: 60 Year
  Sex: Male
  Weight: 68 kg

DRUGS (11)
  1. PAXLOVID [Interacting]
     Active Substance: NIRMATRELVIR\RITONAVIR
     Indication: COVID-19 treatment
     Dosage: 3 DF, 2X/DAY
     Route: 048
     Dates: start: 20251003, end: 20251007
  2. TACROLIMUS [Interacting]
     Active Substance: TACROLIMUS
     Indication: Prophylaxis against transplant rejection
     Dosage: 2 MG 2X/JOUR
     Route: 048
     Dates: start: 20250804, end: 20251007
  3. AMOXICILLIN [Concomitant]
     Active Substance: AMOXICILLIN
     Dosage: 2 DF, 1X/DAY
  4. ACYCLOVIR [Concomitant]
     Active Substance: ACYCLOVIR
     Dosage: 2 DF, 1X/DAY
  5. BACTRIM [Concomitant]
     Active Substance: SULFAMETHOXAZOLE\TRIMETHOPRIM
     Dosage: 3 DF, WEEKLY
  6. DEXPANTHENOL [Concomitant]
     Active Substance: DEXPANTHENOL
     Dosage: 1 DF, 1X/DAY
  7. MAGNESIUM [Concomitant]
     Active Substance: MAGNESIUM
     Dosage: 1 DF, 1X/DAY
  8. LOSARTAN POTASSIUM [Concomitant]
     Active Substance: LOSARTAN POTASSIUM
     Dosage: 0.5 COMP 2X/J
  9. ASPIRIN [Concomitant]
     Active Substance: ASPIRIN
     Dosage: 1 DF, 1X/DAY
  10. DIOSMIN [Concomitant]
     Active Substance: DIOSMIN
     Dosage: 2 COMP 2X/J
  11. MEDROL [Concomitant]
     Active Substance: METHYLPREDNISOLONE
     Dosage: 0.5 DF, 1X/DAY

REACTIONS (4)
  - Drug interaction [Recovering/Resolving]
  - Acute kidney injury [Recovering/Resolving]
  - Hyperkalaemia [Recovering/Resolving]
  - Overdose [Recovering/Resolving]

NARRATIVE: CASE EVENT DATE: 20251007
